FAERS Safety Report 11323080 (Version 2)
Quarter: 2022Q3

REPORT INFORMATION
  Report Type: Other
  Country: ES (occurrence: None)
  Receive Date: 20150730
  Receipt Date: 20220715
  Transmission Date: 20221027
  Serious: Yes (Other)
  Sender: FDA-Public Use
  Company Number: ES-ROCHE-1614474

PATIENT

DRUGS (3)
  1. RIBAVIRIN [Suspect]
     Active Substance: RIBAVIRIN
     Indication: Chronic hepatitis C
     Dosage: A TOTAL DAILY DOSE OF 800 MG TO 1400 MG BASED ON WEIGHT
     Route: 048
  2. GRAZOPREVIR [Suspect]
     Active Substance: GRAZOPREVIR
     Indication: Chronic hepatitis C
     Route: 048
  3. ELBASVIR [Suspect]
     Active Substance: ELBASVIR
     Indication: Chronic hepatitis C
     Route: 048

REACTIONS (8)
  - Haemoglobin decreased [Unknown]
  - Epistaxis [Unknown]
  - Bilirubin conjugated increased [Unknown]
  - Pancreatic enzymes increased [Unknown]
  - Blood bilirubin increased [Unknown]
  - Prothrombin time ratio increased [Unknown]
  - White blood cell count decreased [Unknown]
  - Platelet count decreased [Unknown]
